FAERS Safety Report 12204688 (Version 1)
Quarter: 2016Q1

REPORT INFORMATION
  Report Type: Spontaneous
  Country: US (occurrence: US)
  Receive Date: 20160323
  Receipt Date: 20160323
  Transmission Date: 20160526
  Serious: No
  Sender: FDA-Public Use
  Company Number: CHPA2016US003597

PATIENT
  Sex: Female

DRUGS (4)
  1. VOLTAREN [Suspect]
     Active Substance: DICLOFENAC SODIUM
     Indication: PRODUCT USED FOR UNKNOWN INDICATION
     Dosage: UNK
     Route: 061
  2. ESOMEPRAZOLE [Concomitant]
     Active Substance: ESOMEPRAZOLE
     Dosage: UNK
     Route: 065
     Dates: start: 2015, end: 2015
  3. ALKA SELTZER                       /00057201/ [Concomitant]
     Dosage: UNK
     Route: 065
     Dates: start: 2012, end: 2012
  4. GAS-X [Concomitant]
     Active Substance: DIMETHICONE
     Dosage: UNK
     Route: 065
     Dates: start: 2009

REACTIONS (1)
  - Hypersensitivity [Unknown]
